FAERS Safety Report 18346355 (Version 1)
Quarter: 2020Q4

REPORT INFORMATION
  Report Type: Spontaneous
  Country: US (occurrence: US)
  Receive Date: 20201005
  Receipt Date: 20201005
  Transmission Date: 20210114
  Serious: No
  Sender: FDA-Public Use
  Company Number: US-TAKEDA-2020TUS041062

PATIENT

DRUGS (1)
  1. TRINTELLIX [Suspect]
     Active Substance: VORTIOXETINE HYDROBROMIDE
     Indication: STRESS
     Dosage: 10 MILLIGRAM, QOD
     Route: 065

REACTIONS (5)
  - Dysarthria [Unknown]
  - Dizziness [Unknown]
  - Off label use [Unknown]
  - Feeling abnormal [Unknown]
  - Nausea [Unknown]
